FAERS Safety Report 14102201 (Version 1)
Quarter: 2017Q4

REPORT INFORMATION
  Report Type: Spontaneous
  Country: SE (occurrence: SE)
  Receive Date: 20171018
  Receipt Date: 20171018
  Transmission Date: 20180321
  Serious: Yes (Hospitalization, Other)
  Sender: FDA-Public Use
  Company Number: SE-MYLANLABS-2017M1064463

PATIENT
  Age: 38 Year
  Sex: Female

DRUGS (1)
  1. LERGIGAN (PROMETHAZINE HYDROCHLORIDE) [Suspect]
     Active Substance: PROMETHAZINE HYDROCHLORIDE
     Indication: PRODUCT USED FOR UNKNOWN INDICATION
     Dosage: UNK

REACTIONS (5)
  - Intentional overdose [Recovered/Resolved]
  - Hallucination, auditory [Recovered/Resolved]
  - Depressed level of consciousness [Recovered/Resolved]
  - Hallucination, tactile [Recovered/Resolved]
  - Toxicity to various agents [Recovered/Resolved]
